FAERS Safety Report 19803389 (Version 1)
Quarter: 2021Q3

REPORT INFORMATION
  Report Type: Spontaneous
  Country: US (occurrence: US)
  Receive Date: 20210902
  Receipt Date: 20210902
  Transmission Date: 20211014
  Serious: Yes (Hospitalization)
  Sender: FDA-Public Use
  Company Number: None

PATIENT
  Age: 54 Year
  Sex: Female

DRUGS (2)
  1. ACTEMRA [Suspect]
     Active Substance: TOCILIZUMAB
     Indication: RHEUMATOID ARTHRITIS
     Route: 042
     Dates: start: 20210422, end: 20210815
  2. ACTEMRA [Suspect]
     Active Substance: TOCILIZUMAB
     Indication: RHEUMATOID ARTHRITIS
     Route: 042
     Dates: start: 20210422, end: 20210815

REACTIONS (6)
  - Dehydration [None]
  - Sinusitis [None]
  - Gastroenteritis viral [None]
  - COVID-19 [None]
  - Therapy interrupted [None]
  - Upper respiratory tract infection [None]

NARRATIVE: CASE EVENT DATE: 20210810
